FAERS Safety Report 8132439-5 (Version None)
Quarter: 2012Q1

REPORT INFORMATION
  Report Type: 
  Country: None (occurrence: None)
  Receive Date: 20120213
  Receipt Date: 20120210
  Transmission Date: 20120608
  Serious: Yes (Death)
  Sender: FDA-Public Use
  Company Number: JP-BRACCO-005636

PATIENT
  Age: 60 Year
  Sex: Male

DRUGS (2)
  1. IOPAMIDOL [Suspect]
     Indication: COMPUTERISED TOMOGRAM
     Route: 042
     Dates: start: 20120209, end: 20120209
  2. IOPAMIDOL [Suspect]
     Indication: AORTIC ANEURYSM
     Route: 042
     Dates: start: 20120209, end: 20120209

REACTIONS (1)
  - SHOCK [None]
